FAERS Safety Report 8614452-4 (Version None)
Quarter: 2012Q3

REPORT INFORMATION
  Report Type: 
  Country: None (occurrence: None)
  Receive Date: 20120823
  Receipt Date: 20120816
  Transmission Date: 20120928
  Serious: Yes (Other)
  Sender: FDA-Public Use
  Company Number: PHHY2012DE072162

PATIENT
  Age: 62 Year
  Sex: Female

DRUGS (1)
  1. ESTRADERM [Suspect]
     Indication: HORMONE REPLACEMENT THERAPY
     Dosage: 1 DF, EVERY 3 TO 4 DAYS
     Route: 062

REACTIONS (2)
  - CARDIAC FAILURE [None]
  - RENAL INJURY [None]
